FAERS Safety Report 16808773 (Version 1)
Quarter: 2019Q3

REPORT INFORMATION
  Report Type: Report from Study
  Country: DE (occurrence: DE)
  Receive Date: 20190916
  Receipt Date: 20190916
  Transmission Date: 20191005
  Serious: Yes (Hospitalization)
  Sender: FDA-Public Use
  Company Number: DE-CELGENEUS-DEU-2014114310

PATIENT
  Age: 67 Year
  Sex: Female
  Weight: 63 kg

DRUGS (28)
  1. AMLODIPINE [Concomitant]
     Active Substance: AMLODIPINE BESYLATE
     Indication: HYPERTENSION
     Dosage: 10 MILLIGRAM
     Route: 048
     Dates: start: 2008, end: 20141123
  2. INSULIN [Concomitant]
     Active Substance: INSULIN NOS
     Indication: DIABETES MELLITUS
     Dosage: 4 IU (INTERNATIONAL UNIT)
     Route: 058
     Dates: start: 201410
  3. INSULIN [Concomitant]
     Active Substance: INSULIN NOS
     Route: 058
     Dates: start: 201410
  4. DEXAMETHASONE. [Concomitant]
     Active Substance: DEXAMETHASONE
     Indication: PROPHYLAXIS OF NAUSEA AND VOMITING
     Route: 048
     Dates: start: 20141117, end: 20141125
  5. TAGAMET [Concomitant]
     Active Substance: CIMETIDINE
     Indication: ALLERGY PROPHYLAXIS
     Route: 041
     Dates: start: 20141117, end: 20141125
  6. OLICLINOMEL [Concomitant]
     Active Substance: AMINO ACIDS\DEXTROSE\ELECTROLYTES NOS\SOYBEAN OIL
     Indication: PROPHYLAXIS
     Route: 041
     Dates: start: 20141118, end: 20141118
  7. PNEUMOVAX 23 [Concomitant]
     Active Substance: PNEUMOCOCCAL VACCINE, POLYVALENT 23
     Indication: PROPHYLAXIS
     Dosage: AMPULE
     Route: 058
     Dates: start: 20141114, end: 20141114
  8. AMINOMIX [Concomitant]
     Indication: PROPHYLAXIS
     Dosage: 1 LITERS
     Route: 065
     Dates: start: 20141117, end: 20141117
  9. OLICLINOMEL [Concomitant]
     Active Substance: AMINO ACIDS\DEXTROSE\ELECTROLYTES NOS\SOYBEAN OIL
     Route: 041
     Dates: start: 20141125, end: 20141125
  10. CLEXANE [Concomitant]
     Active Substance: ENOXAPARIN SODIUM
     Indication: THROMBOSIS PROPHYLAXIS
     Dosage: .2 MILLILITER
     Route: 058
     Dates: start: 20140930
  11. METOCLOPRAMIDE. [Concomitant]
     Active Substance: METOCLOPRAMIDE
     Indication: PROPHYLAXIS OF NAUSEA AND VOMITING
     Route: 065
     Dates: start: 20141127, end: 20141129
  12. VALSARTAN. [Concomitant]
     Active Substance: VALSARTAN
     Indication: HYPERTENSION
     Dosage: 160 MILLIGRAM
     Route: 048
     Dates: start: 2008
  13. DEXAMETHASONE. [Concomitant]
     Active Substance: DEXAMETHASONE
     Route: 048
     Dates: start: 20141118, end: 20141126
  14. TAVEGIL [Concomitant]
     Active Substance: CLEMASTINE FUMARATE
     Indication: ALLERGY PROPHYLAXIS
     Dosage: AMPULE
     Route: 041
     Dates: start: 20141117, end: 20141125
  15. ZOLPIDEM [Concomitant]
     Active Substance: ZOLPIDEM TARTRATE
     Indication: PROPHYLAXIS
     Route: 048
     Dates: start: 20141117, end: 20141118
  16. AMLODIPINE [Concomitant]
     Active Substance: AMLODIPINE BESYLATE
     Dosage: 5 MILLIGRAM
     Route: 048
     Dates: start: 20141124, end: 20141129
  17. BISOPROLOL [Concomitant]
     Active Substance: BISOPROLOL
     Indication: HYPERTENSION
     Dosage: 5 MILLIGRAM
     Route: 048
     Dates: start: 2008
  18. GRANISETRON [Concomitant]
     Active Substance: GRANISETRON
     Indication: PROPHYLAXIS OF NAUSEA AND VOMITING
     Dosage: AMPULE
     Route: 041
     Dates: start: 20141117, end: 20141125
  19. OXAZEPAM. [Concomitant]
     Active Substance: OXAZEPAM
     Indication: PROPHYLAXIS
     Route: 048
     Dates: start: 20141117, end: 20141118
  20. ABI-007 [Suspect]
     Active Substance: PACLITAXEL
     Indication: ADENOCARCINOMA PANCREAS
     Dosage: 125 MILLIGRAM/SQ. METER
     Route: 041
     Dates: start: 20141117, end: 20141201
  21. GEMCITABINE. [Suspect]
     Active Substance: GEMCITABINE
     Indication: ADENOCARCINOMA PANCREAS
     Dosage: 1000 MILLIGRAM/SQ. METER
     Route: 041
     Dates: start: 20141117, end: 20141201
  22. GEMCITABINE. [Suspect]
     Active Substance: GEMCITABINE
     Dosage: 1000 MILLIGRAM/SQ. METER
     Route: 041
     Dates: end: 20141210
  23. KREON [Concomitant]
     Active Substance: PANCRELIPASE
     Indication: PANCREATECTOMY
     Dosage: 120000 IU (INTERNATIONAL UNIT)
     Route: 048
     Dates: start: 20140930
  24. SALVIA THYMOL [Concomitant]
     Indication: PROPHYLAXIS
     Route: 065
     Dates: start: 20141117
  25. AMINOMIX [Concomitant]
     Indication: CACHEXIA
     Dosage: 1 LITERS
     Route: 065
     Dates: start: 20141126, end: 20141126
  26. ZOLPIDEM [Concomitant]
     Active Substance: ZOLPIDEM TARTRATE
     Route: 048
     Dates: start: 20141126, end: 20141127
  27. AMINOMIX [Concomitant]
     Dosage: 1000 LITERS
     Route: 041
     Dates: start: 20141201, end: 20141204
  28. PANTOZOL [Concomitant]
     Active Substance: PANTOPRAZOLE SODIUM
     Indication: GASTRITIS PROPHYLAXIS
     Dosage: 40 MILLIGRAM
     Route: 048
     Dates: start: 20141105

REACTIONS (8)
  - Neutropenia [Recovered/Resolved]
  - Sepsis [Recovered/Resolved]
  - Thrombocytopenia [Recovered/Resolved]
  - Haemolytic uraemic syndrome [Recovering/Resolving]
  - Febrile neutropenia [Recovered/Resolved]
  - Cholangitis [Recovered/Resolved]
  - Colitis [Recovered/Resolved]
  - Hyperglycaemia [Recovering/Resolving]

NARRATIVE: CASE EVENT DATE: 20141124
